FAERS Safety Report 17681692 (Version 3)
Quarter: 2021Q1

REPORT INFORMATION
  Report Type: Report from Study
  Country: CA (occurrence: CA)
  Receive Date: 20200417
  Receipt Date: 20210306
  Transmission Date: 20210419
  Serious: Yes (Other)
  Sender: FDA-Public Use
  Company Number: PHHY2019CA221234

PATIENT
  Age: 67 Year
  Sex: Female

DRUGS (4)
  1. ROSUVASTATIN. [Concomitant]
     Active Substance: ROSUVASTATIN
     Indication: BLOOD CHOLESTEROL
     Dosage: 5 MG, QD
     Route: 065
  2. PANTOPRAZOLE [Concomitant]
     Active Substance: PANTOPRAZOLE
     Indication: GASTROOESOPHAGEAL REFLUX DISEASE
     Dosage: 40 MG, QD
     Route: 065
  3. ILARIS [Suspect]
     Active Substance: CANAKINUMAB
     Dosage: 150 MG, (EVERY 8 WEEKS)
     Route: 058
     Dates: start: 20191002
  4. ILARIS [Suspect]
     Active Substance: CANAKINUMAB
     Indication: MUCKLE-WELLS SYNDROME
     Dosage: 150 MG, (8 WEEKS)
     Route: 058
     Dates: start: 20190807

REACTIONS (5)
  - Arthralgia [Unknown]
  - Fatigue [Unknown]
  - Blood pressure increased [Not Recovered/Not Resolved]
  - Malaise [Unknown]
  - Heart rate increased [Unknown]

NARRATIVE: CASE EVENT DATE: 201909
